FAERS Safety Report 9390854 (Version 1)
Quarter: 2013Q3

REPORT INFORMATION
  Report Type: Spontaneous
  Country: US (occurrence: None)
  Receive Date: 20130705
  Receipt Date: 20130705
  Transmission Date: 20140515
  Serious: No
  Sender: FDA-Public Use
  Company Number: None

PATIENT
  Age: 71 Year
  Sex: Female

DRUGS (1)
  1. XELODA [Suspect]
     Indication: PANCREATIC CARCINOMA
     Route: 048
     Dates: start: 20130524, end: 20130703

REACTIONS (4)
  - Palmar-plantar erythrodysaesthesia syndrome [None]
  - Condition aggravated [None]
  - Erythema [None]
  - Swelling [None]
